FAERS Safety Report 4653562-3 (Version None)
Quarter: 2005Q2

REPORT INFORMATION
  Report Type: 
  Country: None (occurrence: None)
  Receive Date: 20050505
  Receipt Date: 20050113
  Transmission Date: 20051028
  Serious: Yes (Hospitalization, Other)
  Sender: FDA-Public Use
  Company Number: PHBS2005JP00878

PATIENT
  Age: 70 Year
  Sex: Male

DRUGS (4)
  1. GLEEVEC [Suspect]
     Indication: CHRONIC MYELOID LEUKAEMIA
     Dosage: 400 MG/DAY
     Route: 048
     Dates: start: 20011201, end: 20050101
  2. GLEEVEC [Suspect]
     Dosage: 200 MG/DAY
     Route: 048
     Dates: start: 20050208
  3. GLEEVEC [Suspect]
     Dosage: 100 MG/DAY
     Route: 048
  4. H2-RECEPTOR ANTAGONISTS [Concomitant]
     Indication: GASTRIC ULCER

REACTIONS (8)
  - GASTRIC CANCER [None]
  - GASTRIC OUTLET OBSTRUCTION [None]
  - GASTRIC ULCER [None]
  - IRON DEFICIENCY ANAEMIA [None]
  - PLATELET COUNT DECREASED [None]
  - STOMACH DISCOMFORT [None]
  - SURGERY [None]
  - VOMITING [None]
